FAERS Safety Report 16337976 (Version 1)
Quarter: 2019Q2

REPORT INFORMATION
  Report Type: Spontaneous
  Country: US (occurrence: US)
  Receive Date: 20190521
  Receipt Date: 20190521
  Transmission Date: 20190711
  Serious: No
  Sender: FDA-Public Use
  Company Number: US-GLAXOSMITHKLINE-US2019085824

PATIENT
  Age: 82 Year
  Sex: Male

DRUGS (1)
  1. DICLOFENAC SODIUM GEL [Suspect]
     Active Substance: DICLOFENAC SODIUM
     Indication: PAIN
     Dosage: UNK UNK, HE USED IT 3 TIMES
     Dates: start: 201905

REACTIONS (1)
  - Burning sensation [Unknown]
